FAERS Safety Report 5764663-0 (Version None)
Quarter: 2008Q2

REPORT INFORMATION
  Report Type: 
  Country: None (occurrence: None)
  Receive Date: 20080611
  Receipt Date: 20080529
  Transmission Date: 20081010
  Serious: Yes (Other)
  Sender: FDA-Public Use
  Company Number: PHHY2008FR09542

PATIENT
  Age: 51 Year
  Sex: Female

DRUGS (2)
  1. EXJADE [Suspect]
     Indication: IRON OVERLOAD
     Dosage: 250 MG/DAY
     Dates: start: 20080521, end: 20080529
  2. MAGNESIUM [Concomitant]
     Dosage: UNK

REACTIONS (4)
  - ERYTHEMA [None]
  - JOINT SWELLING [None]
  - PYREXIA [None]
  - RASH MACULO-PAPULAR [None]
